FAERS Safety Report 10023819 (Version 1)
Quarter: 2014Q1

REPORT INFORMATION
  Report Type: Spontaneous
  Country: US (occurrence: None)
  Receive Date: 20140319
  Receipt Date: 20140319
  Transmission Date: 20141002
  Serious: Yes (Hospitalization)
  Sender: FDA-Public Use
  Company Number: None

PATIENT
  Sex: Female
  Weight: 63.96 kg

DRUGS (4)
  1. MICARDIS [Suspect]
     Indication: HYPERTENSION
     Dosage: 2 PILLS
     Route: 048
  2. BISOPROLOL [Concomitant]
  3. 1 A DAY VITAMIN [Concomitant]
  4. PANTOPRAZOLE [Concomitant]

REACTIONS (4)
  - Dry mouth [None]
  - Product packaging issue [None]
  - Breath odour [None]
  - Condition aggravated [None]
